FAERS Safety Report 15720892 (Version 1)
Quarter: 2018Q4

REPORT INFORMATION
  Report Type: Report from Study
  Country: IN (occurrence: IN)
  Receive Date: 20181214
  Receipt Date: 20181214
  Transmission Date: 20190205
  Serious: Yes (Death)
  Sender: FDA-Public Use
  Company Number: PHHY2018IN042004

PATIENT
  Age: 74 Year
  Sex: Male
  Weight: 54 kg

DRUGS (1)
  1. VYMADA [Suspect]
     Active Substance: SACUBITRIL\VALSARTAN
     Indication: CARDIAC FAILURE
     Dosage: 50 MG, BID
     Route: 048
     Dates: start: 20180104

REACTIONS (3)
  - Dyspnoea [Fatal]
  - Cardiomegaly [Fatal]
  - Lung disorder [Fatal]
